FAERS Safety Report 8354681-0 (Version None)
Quarter: 2012Q2

REPORT INFORMATION
  Report Type: 
  Country: None (occurrence: None)
  Receive Date: 20120511
  Receipt Date: 20120504
  Transmission Date: 20120825
  Serious: Yes (Other)
  Sender: FDA-Public Use
  Company Number: US-ASTRAZENECA-2011SE14981

PATIENT
  Age: 58 Year
  Sex: Female
  Weight: 90.7 kg

DRUGS (19)
  1. NOVOLOG [Concomitant]
  2. NEXIUM [Suspect]
     Indication: GASTROOESOPHAGEAL REFLUX DISEASE
     Route: 048
     Dates: start: 19980101, end: 20080101
  3. PROTONIX [Concomitant]
     Indication: GASTROOESOPHAGEAL REFLUX DISEASE
  4. SYMBICORT [Concomitant]
  5. NEXIUM [Suspect]
     Route: 048
  6. PANTOPRAZOLE SODIUM [Concomitant]
  7. ACIPHEX [Concomitant]
     Indication: GASTROOESOPHAGEAL REFLUX DISEASE
  8. BENICAR HCT [Concomitant]
  9. SPIRIVA [Concomitant]
  10. NEXIUM [Suspect]
     Route: 048
     Dates: start: 19980101, end: 20080101
  11. NEXIUM [Suspect]
     Route: 048
     Dates: start: 20110314
  12. NEXIUM [Suspect]
     Route: 048
     Dates: start: 20110314
  13. NEXIUM [Suspect]
     Route: 048
  14. SYNTHROID [Concomitant]
  15. SINGULAIR [Concomitant]
  16. CRESTOR [Concomitant]
  17. OMEPRAZOLE [Suspect]
     Indication: GASTROOESOPHAGEAL REFLUX DISEASE
     Route: 048
     Dates: start: 20080101
  18. CARAFATE [Concomitant]
     Indication: GASTROOESOPHAGEAL REFLUX DISEASE
  19. LANTUS [Concomitant]

REACTIONS (14)
  - GASTRITIS [None]
  - MULTIPLE SCLEROSIS [None]
  - OESOPHAGEAL DISORDER [None]
  - OESOPHAGEAL CARCINOMA [None]
  - BARRETT'S OESOPHAGUS [None]
  - FEELING ABNORMAL [None]
  - INTENTIONAL DRUG MISUSE [None]
  - DIABETES MELLITUS [None]
  - DRUG PRESCRIBING ERROR [None]
  - DRUG INEFFECTIVE [None]
  - DIAPHRAGMATIC HERNIA [None]
  - ASTHMA [None]
  - CHRONIC OBSTRUCTIVE PULMONARY DISEASE [None]
  - GASTROOESOPHAGEAL REFLUX DISEASE [None]
